FAERS Safety Report 8517978 (Version 2)
Quarter: 2013Q4

REPORT INFORMATION
  Report Type: Spontaneous
  Country: US (occurrence: US)
  Receive Date: 20120417
  Receipt Date: 20131218
  Transmission Date: 20140711
  Serious: Yes (Hospitalization, Other)
  Sender: FDA-Public Use
  Company Number: US-ASTRAZENECA-2011SE35582

PATIENT
  Age: 63 Year
  Sex: Female
  Weight: 99.8 kg

DRUGS (25)
  1. NEXIUM [Suspect]
     Indication: GASTROOESOPHAGEAL REFLUX DISEASE
     Route: 048
     Dates: start: 2009, end: 2013
  2. NEXIUM [Suspect]
     Indication: GASTROOESOPHAGEAL REFLUX DISEASE
     Dosage: DAILY
     Route: 048
  3. TOPROL XL [Suspect]
     Route: 048
  4. BENICAR [Concomitant]
     Indication: BLOOD PRESSURE ABNORMAL
     Route: 048
     Dates: start: 2012
  5. GABAPENTIN [Concomitant]
     Indication: NEURALGIA
     Route: 048
     Dates: start: 2012
  6. GABAPENTIN [Concomitant]
     Indication: BURNING SENSATION
     Route: 048
     Dates: start: 2012
  7. CITALOPRAM [Concomitant]
     Indication: ANXIETY
     Route: 048
  8. CITALOPRAM [Concomitant]
     Indication: DEPRESSION
     Route: 048
  9. VITAMIN D 3 [Concomitant]
     Indication: VITAMIN D DECREASED
     Dosage: 1000 (UNKNOWN) DAILY
     Route: 048
     Dates: start: 2012
  10. VITAMIN D 3 [Concomitant]
     Indication: VITAMIN D DECREASED
     Dosage: NATURAL, 2000 (UNKNOWN) DAILY
     Route: 048
     Dates: start: 2012
  11. LEVOTHYROXINE [Concomitant]
     Indication: THYROID DISORDER
     Route: 048
  12. ATOROVASTIN [Concomitant]
     Indication: BLOOD PRESSURE ABNORMAL
     Route: 048
  13. DIPHENHYDRAMINE [Concomitant]
     Indication: HYPERSENSITIVITY
     Route: 048
     Dates: start: 2010
  14. TOPAMAX [Concomitant]
     Indication: ANXIETY
     Dosage: 100 MG, TWO TIMES A DAY, START DATE 2-3 YEARS AGO
     Route: 048
  15. TOPAMAX [Concomitant]
     Indication: DEPRESSION
     Dosage: 100 MG, TWO TIMES A DAY, START DATE 2-3 YEARS AGO
     Route: 048
  16. CYBALTA [Concomitant]
     Route: 048
     Dates: start: 2013
  17. HYDROCHLOROTHIAZIDE [Concomitant]
     Indication: BLOOD PRESSURE ABNORMAL
     Route: 048
  18. SINGULAIR [Concomitant]
     Indication: MULTIPLE ALLERGIES
     Route: 048
     Dates: start: 2012
  19. CALCIUM WITH VITAMIN D [Concomitant]
     Indication: BONE DISORDER
     Route: 048
     Dates: start: 2012
  20. BABY ASPIRIN [Concomitant]
     Indication: ANTICOAGULANT THERAPY
     Dosage: UNKNOWN DAILY
     Route: 048
     Dates: start: 2011
  21. ADVAIR [Concomitant]
     Indication: ASTHMA
     Dosage: 1 PUFF, TWO TIMES A DAY
     Route: 055
     Dates: start: 2008
  22. ALBUTEROL [Concomitant]
     Indication: ASTHMA
     Dosage: 1 PUFF, AS REQUIRED
     Route: 055
  23. TUMS [Concomitant]
     Indication: GASTROOESOPHAGEAL REFLUX DISEASE
     Dosage: UNKNOWN PRN
     Route: 048
     Dates: start: 2013
  24. TUMS [Concomitant]
     Indication: DYSPEPSIA
     Dosage: UNKNOWN PRN
     Route: 048
     Dates: start: 2013
  25. MAALOX [Concomitant]
     Indication: GASTRIC DISORDER
     Dosage: UNKNOWN BID
     Route: 048
     Dates: start: 2013

REACTIONS (35)
  - Hemiparesis [Unknown]
  - Intervertebral disc protrusion [Unknown]
  - Nerve injury [Unknown]
  - Pneumonia [Unknown]
  - Neck pain [Unknown]
  - Bone erosion [Unknown]
  - Headache [Unknown]
  - Nerve injury [Unknown]
  - Dysphagia [Unknown]
  - Gastrooesophageal reflux disease [Unknown]
  - Chest pain [Unknown]
  - Throat irritation [Unknown]
  - Back disorder [Unknown]
  - Asthma [Unknown]
  - Osteoporosis [Unknown]
  - Vitamin D deficiency [Unknown]
  - Blood pressure abnormal [Recovering/Resolving]
  - Fibromyalgia [Unknown]
  - Limb discomfort [Not Recovered/Not Resolved]
  - Gait disturbance [Unknown]
  - Hypoaesthesia [Unknown]
  - Hypersomnia [Unknown]
  - Impaired driving ability [Unknown]
  - Fatigue [Unknown]
  - Dyskinesia [Unknown]
  - Musculoskeletal discomfort [Unknown]
  - Adverse event [Unknown]
  - Malaise [Unknown]
  - Abdominal discomfort [Unknown]
  - Eructation [Unknown]
  - Dysgeusia [Unknown]
  - Muscular weakness [Unknown]
  - Off label use [Unknown]
  - Intentional drug misuse [Unknown]
  - Drug dose omission [Unknown]
